FAERS Safety Report 13560995 (Version 1)
Quarter: 2017Q2

REPORT INFORMATION
  Report Type: Spontaneous
  Country: US (occurrence: US)
  Receive Date: 20170518
  Receipt Date: 20170518
  Transmission Date: 20170830
  Serious: No
  Sender: FDA-Public Use
  Company Number: US-ROCHE-1251230

PATIENT

DRUGS (6)
  1. METFORMIN [Suspect]
     Active Substance: METFORMIN HYDROCHLORIDE
     Indication: PRODUCT USED FOR UNKNOWN INDICATION
     Route: 065
  2. NITROSTAT [Concomitant]
     Active Substance: NITROGLYCERIN
     Route: 065
  3. DURICEF [Suspect]
     Active Substance: CEFADROXIL
     Indication: PRODUCT USED FOR UNKNOWN INDICATION
     Route: 065
  4. LIPITOR [Suspect]
     Active Substance: ATORVASTATIN CALCIUM
     Indication: PRODUCT USED FOR UNKNOWN INDICATION
     Route: 065
  5. ANAPROX [Suspect]
     Active Substance: NAPROXEN SODIUM
     Indication: PRODUCT USED FOR UNKNOWN INDICATION
     Route: 065
  6. ASPIRIN. [Suspect]
     Active Substance: ASPIRIN
     Indication: PRODUCT USED FOR UNKNOWN INDICATION
     Route: 065

REACTIONS (5)
  - Urticaria [Unknown]
  - Dyspepsia [Unknown]
  - Diarrhoea [Unknown]
  - Dyspnoea [Unknown]
  - Palpitations [Unknown]
